FAERS Safety Report 7658921-2 (Version None)
Quarter: 2011Q3

REPORT INFORMATION
  Report Type: 
  Country: None (occurrence: None)
  Receive Date: 20110805
  Receipt Date: 20110728
  Transmission Date: 20111222
  Serious: Yes (Other)
  Sender: FDA-Public Use
  Company Number: US-B.I. PHARMACEUTICALS,INC./RIDGEFIELD-2011-BP-18739BP

PATIENT
  Age: 57 Year
  Sex: Male

DRUGS (6)
  1. PRADAXA [Suspect]
     Indication: ATRIAL FIBRILLATION
     Dosage: 300 MG
     Route: 048
     Dates: start: 20110301
  2. LOSARTAN POTASSIUM [Concomitant]
     Indication: HYPERTENSION
  3. LIPITOR [Concomitant]
     Indication: BLOOD CHOLESTEROL INCREASED
  4. METOPROLOL TARTRATE [Concomitant]
     Indication: HYPERTENSION
  5. ASPIRIN [Concomitant]
     Indication: CARDIAC DISORDER
  6. CORDARONE [Suspect]
     Indication: ATRIAL FIBRILLATION

REACTIONS (6)
  - NAUSEA [None]
  - CARDIAC ABLATION [None]
  - EXERCISE TOLERANCE DECREASED [None]
  - WEIGHT INCREASED [None]
  - ABDOMINAL PAIN UPPER [None]
  - DYSPNOEA [None]
